FAERS Safety Report 14145448 (Version 1)
Quarter: 2017Q4

REPORT INFORMATION
  Report Type: Spontaneous
  Country: US (occurrence: US)
  Receive Date: 20171030
  Receipt Date: 20171030
  Transmission Date: 20180321
  Serious: Yes (Other)
  Sender: FDA-Public Use
  Company Number: None

PATIENT
  Age: 94 Year
  Sex: Male
  Weight: 78.7 kg

DRUGS (1)
  1. ALBUMUN [Suspect]
     Active Substance: ALBUMIN HUMAN
     Dosage: ?          OTHER FREQUENCY:ONCE;?
     Route: 041
     Dates: start: 20171025, end: 20171025

REACTIONS (3)
  - Rash macular [None]
  - Dyspnoea [None]
  - Rash generalised [None]

NARRATIVE: CASE EVENT DATE: 20171025
